FAERS Safety Report 6678868-8 (Version None)
Quarter: 2010Q2

REPORT INFORMATION
  Report Type: 
  Country: None (occurrence: None)
  Receive Date: 20100412
  Receipt Date: 20100412
  Transmission Date: 20101027
  Serious: Yes (Other)
  Sender: FDA-Public Use
  Company Number: None

PATIENT
  Sex: Female

DRUGS (2)
  1. AVONEX [Suspect]
     Indication: MULTIPLE SCLEROSIS
     Dosage: 30MCG WEEKLY IM
     Route: 030
     Dates: start: 20070926, end: 20100409
  2. SAVELLA [Concomitant]

REACTIONS (3)
  - MIGRAINE [None]
  - PRURITUS [None]
  - TRIGEMINAL NEURALGIA [None]
